FAERS Safety Report 5580289-6 (Version None)
Quarter: 2008Q1

REPORT INFORMATION
  Report Type: 
  Country: None (occurrence: None)
  Receive Date: 20080103
  Receipt Date: 20071221
  Transmission Date: 20080703
  Serious: Yes (Other)
  Sender: FDA-Public Use
  Company Number: B0501484A

PATIENT
  Age: 78 Year
  Sex: Male

DRUGS (2)
  1. MALARONE [Suspect]
     Indication: MALARIA PROPHYLAXIS
     Dosage: 1TAB PER DAY
     Route: 048
     Dates: start: 20070101, end: 20070101
  2. COLCHICINE [Concomitant]
     Route: 048

REACTIONS (2)
  - GOUT [None]
  - PAIN IN EXTREMITY [None]
